FAERS Safety Report 8972921 (Version 1)
Quarter: 2012Q4

REPORT INFORMATION
  Report Type: 
  Country: US (occurrence: US)
  Receive Date: 20121218
  Receipt Date: 20121218
  Transmission Date: 20130627
  Serious: No
  Sender: FDA-Public Use
  Company Number: US-BRISTOL-MYERS SQUIBB COMPANY-16962755

PATIENT
  Age: 4 Year
  Sex: Male
  Weight: 18.59 kg

DRUGS (2)
  1. ABILIFY TABS 2 MG [Suspect]
     Indication: ATTENTION DEFICIT/HYPERACTIVITY DISORDER
     Dosage: 1 tab,about 1 month ago,samples,dose raised to 1.5 tab
     Dates: start: 2012
  2. ABILIFY TABS 2 MG [Suspect]
     Indication: OPPOSITIONAL DEFIANT DISORDER
     Dosage: 1 tab,about 1 month ago,samples,dose raised to 1.5 tab
     Dates: start: 2012

REACTIONS (1)
  - Drug ineffective [Unknown]
